FAERS Safety Report 18124966 (Version 2)
Quarter: 2020Q3

REPORT INFORMATION
  Report Type: Spontaneous
  Country: US (occurrence: US)
  Receive Date: 20200807
  Receipt Date: 20200813
  Transmission Date: 20201103
  Serious: No
  Sender: FDA-Public Use
  Company Number: US-ACTELION-A-US2020-206249

PATIENT
  Age: 72 Year
  Sex: Male

DRUGS (12)
  1. LEVOTHYROXINE. [Concomitant]
     Active Substance: LEVOTHYROXINE
  2. MELATONIN [Concomitant]
     Active Substance: MELATONIN
  3. INSULIN [Concomitant]
     Active Substance: INSULIN NOS
  4. ISOSORBIDE MONONITRATE. [Concomitant]
     Active Substance: ISOSORBIDE MONONITRATE
  5. HYDROCODONE [Concomitant]
     Active Substance: HYDROCODONE
     Dosage: UNK, PRN
     Route: 048
  6. TYLENOL [Concomitant]
     Active Substance: ACETAMINOPHEN
     Dosage: UNK, Q6HRS
  7. OPSUMIT [Suspect]
     Active Substance: MACITENTAN
     Indication: PULMONARY ARTERIAL HYPERTENSION
     Dosage: 10 MG, QD
     Route: 048
     Dates: start: 20200608
  8. FAMOTIDINE. [Concomitant]
     Active Substance: FAMOTIDINE
  9. VITAMINS NOS [Concomitant]
     Active Substance: VITAMINS
  10. VITAMIN B12 [Concomitant]
     Active Substance: CYANOCOBALAMIN
  11. TYLENOL [Concomitant]
     Active Substance: ACETAMINOPHEN
     Dosage: UNK, PRN
     Route: 048
  12. CALCIUM [Concomitant]
     Active Substance: CALCIUM

REACTIONS (6)
  - Pruritus [Not Recovered/Not Resolved]
  - Nasal congestion [Not Recovered/Not Resolved]
  - Sinus congestion [Not Recovered/Not Resolved]
  - Pain in extremity [Not Recovered/Not Resolved]
  - Headache [Not Recovered/Not Resolved]
  - Dyspnoea [Unknown]

NARRATIVE: CASE EVENT DATE: 202006
